FAERS Safety Report 9051435 (Version 1)
Quarter: 2013Q1

REPORT INFORMATION
  Report Type: Spontaneous
  Country: US (occurrence: US)
  Receive Date: 20130206
  Receipt Date: 20130206
  Transmission Date: 20140127
  Serious: No
  Sender: FDA-Public Use
  Company Number: US-ALLERGAN-1209731US

PATIENT
  Age: 70 Year
  Sex: Female

DRUGS (2)
  1. RESTASIS [Suspect]
     Indication: DRY EYE
     Dosage: 2 GTT, BID
     Route: 047
     Dates: start: 201206, end: 2012
  2. SYSTANE TEARS [Concomitant]
     Indication: DRY EYE
     Dosage: UNK, PRN

REACTIONS (1)
  - Eye pruritus [Recovered/Resolved]
